FAERS Safety Report 6106841-7 (Version None)
Quarter: 2009Q1

REPORT INFORMATION
  Report Type: 
  Country: None (occurrence: None)
  Receive Date: 20090303
  Receipt Date: 20090219
  Transmission Date: 20090719
  Serious: Yes (Disabling, Other)
  Sender: FDA-Public Use
  Company Number: GXKR2009TR02165

PATIENT
  Age: 17 Year
  Sex: Male

DRUGS (2)
  1. CYCLOSPORINE [Suspect]
     Indication: BEHCET'S SYNDROME
     Dosage: 200 MG, (3 MG/KG/DAY)
  2. AZATHIOPRINE [Concomitant]

REACTIONS (1)
  - BRAIN STEM SYNDROME [None]
